FAERS Safety Report 8809719 (Version 2)
Quarter: 2013Q2

REPORT INFORMATION
  Report Type: Report from Study
  Country: JP (occurrence: JP)
  Receive Date: 20120926
  Receipt Date: 20130613
  Transmission Date: 20140414
  Serious: Yes (Hospitalization, Other)
  Sender: FDA-Public Use
  Company Number: JP-VERTEX PHARMACEUTICAL INC.-AE-2012-009742

PATIENT
  Age: 60 Year
  Sex: Male

DRUGS (15)
  1. VX-950 (TELAPREVIR) [Suspect]
     Indication: CHRONIC HEPATITIS C
     Dosage: 2250 MG, QD
     Route: 048
     Dates: start: 20120621, end: 20120625
  2. REBETOL [Concomitant]
     Dosage: 800 MG, QD
     Route: 048
     Dates: start: 20120621, end: 20120630
  3. PEGINTRON [Concomitant]
     Dosage: 1.5 ?G/KG, QW
     Route: 058
     Dates: start: 20120621, end: 20120628
  4. URSO [Concomitant]
     Dosage: 600 MG, QD
     Route: 048
  5. ARTIST [Concomitant]
     Dosage: 10 MG, QD
     Route: 048
  6. ADALAT CR [Concomitant]
     Dosage: 20 MG, QD
     Route: 048
  7. BLOPRESS [Concomitant]
     Dosage: 12 MG, QD
     Route: 048
  8. ROHYPNOL [Concomitant]
     Dosage: 1 MG, QD
     Route: 048
  9. MYSLEE [Concomitant]
     Dosage: 5 MG, QD
     Route: 048
  10. CARVEDILOL [Concomitant]
     Route: 048
  11. TOWARAT- CR [Concomitant]
     Route: 048
  12. ZYLORIC [Concomitant]
     Route: 048
  13. BIO-THREE [Concomitant]
     Route: 048
  14. LOPEMIN [Concomitant]
     Route: 048
  15. TANNALBIN [Concomitant]
     Route: 048

REACTIONS (1)
  - Renal failure acute [Not Recovered/Not Resolved]
